FAERS Safety Report 4427823-7 (Version None)
Quarter: 2004Q3

REPORT INFORMATION
  Report Type: 
  Country: None (occurrence: None)
  Receive Date: 20040812
  Receipt Date: 20040803
  Transmission Date: 20050211
  Serious: Yes (Hospitalization)
  Sender: FDA-Public Use
  Company Number: 2004052411

PATIENT
  Age: 64 Year
  Sex: Male

DRUGS (2)
  1. MINOXIDIL [Suspect]
     Indication: ALOPECIA
     Dosage: 1 ML BID, TOPICAL
     Route: 061
     Dates: start: 19990601
  2. PIRMENOL HYDROCHLORIDE (PIRMENOL HYDROCHLORIDE) [Concomitant]

REACTIONS (5)
  - ABASIA [None]
  - ALCOHOL USE [None]
  - CEREBRAL INFARCTION [None]
  - DIFFICULTY IN WALKING [None]
  - MOVEMENT DISORDER [None]
